FAERS Safety Report 9335626 (Version 2)
Quarter: 2013Q2

REPORT INFORMATION
  Report Type: Spontaneous
  Country: US (occurrence: US)
  Receive Date: 20130605
  Receipt Date: 20130625
  Transmission Date: 20140414
  Serious: Yes (Death)
  Sender: FDA-Public Use
  Company Number: US-MYLANLABS-2013S1011836

PATIENT
  Age: 40 Year
  Sex: Female
  Weight: 56.7 kg

DRUGS (1)
  1. ZOLPIDEM TARTRATE TABLETS [Suspect]
     Route: 048
     Dates: start: 20100416, end: 20100416

REACTIONS (2)
  - Intentional drug misuse [Fatal]
  - Victim of homicide [Fatal]
